FAERS Safety Report 11268884 (Version 2)
Quarter: 2015Q3

REPORT INFORMATION
  Report Type: Spontaneous
  Country: BR (occurrence: BR)
  Receive Date: 20150714
  Receipt Date: 20150901
  Transmission Date: 20151125
  Serious: Yes (Other)
  Sender: FDA-Public Use
  Company Number: BR-AMGEN-BRASP2015069448

PATIENT
  Age: 48 Year
  Sex: Female
  Weight: 63 kg

DRUGS (3)
  1. ENBREL [Suspect]
     Active Substance: ETANERCEPT
     Indication: RHEUMATOID ARTHRITIS
     Dosage: 25 MG, 2X/WEEK
     Route: 058
     Dates: start: 200708, end: 201411
  2. ENBREL [Suspect]
     Active Substance: ETANERCEPT
     Dosage: 25 MG, 2X/WEEK
     Route: 058
     Dates: end: 201502
  3. HUMIRA [Concomitant]
     Active Substance: ADALIMUMAB
     Dosage: 40 MG, UNK

REACTIONS (4)
  - Drug ineffective [Unknown]
  - Rheumatoid arthritis [Unknown]
  - Ankylosing spondylitis [Unknown]
  - Condition aggravated [Unknown]
